FAERS Safety Report 22536199 (Version 1)
Quarter: 2023Q2

REPORT INFORMATION
  Report Type: Report from Study
  Country: US (occurrence: US)
  Receive Date: 20230608
  Receipt Date: 20230608
  Transmission Date: 20230722
  Serious: Yes (Other)
  Sender: FDA-Public Use
  Company Number: US-GILEAD-2023-0631790

PATIENT
  Age: 17 Year
  Sex: Female

DRUGS (1)
  1. AZTREONAM LYSINE [Suspect]
     Active Substance: AZTREONAM LYSINE
     Indication: Cystic fibrosis
     Dosage: 75 MG, TID/INHALE 75MG INTO LUNGS 3 TIMES DAILY FOR 28 DAYS ON THEN 28 DAYS OFF.
     Route: 055
     Dates: start: 20221206

REACTIONS (2)
  - Lower respiratory tract infection bacterial [Not Recovered/Not Resolved]
  - Cough [Not Recovered/Not Resolved]
